FAERS Safety Report 5224234-1 (Version None)
Quarter: 2007Q1

REPORT INFORMATION
  Report Type: 
  Country: None (occurrence: None)
  Receive Date: 20070130
  Receipt Date: 20070117
  Transmission Date: 20070707
  Serious: Yes (Hospitalization, Other)
  Sender: FDA-Public Use
  Company Number: US-SHR-US-2005-018616

PATIENT
  Age: 48 Year
  Sex: Female
  Weight: 50 kg

DRUGS (5)
  1. BETASERON [Suspect]
     Indication: SECONDARY PROGRESSIVE MULTIPLE SCLEROSIS
     Dosage: 8 MIU, EVERY 2D
     Route: 058
     Dates: start: 19960101
  2. PROVIGIL [Concomitant]
     Route: 048
  3. DETROL [Concomitant]
     Route: 048
  4. BACLOFEN [Concomitant]
  5. LEXIPRO [Concomitant]

REACTIONS (5)
  - FALL [None]
  - JOINT INJURY [None]
  - KNEE OPERATION [None]
  - MULTIPLE SCLEROSIS [None]
  - TRAUMATIC FRACTURE [None]
